FAERS Safety Report 4879438-4 (Version None)
Quarter: 2005Q4

REPORT INFORMATION
  Report Type: 
  Country: None (occurrence: None)
  Receive Date: 20051209
  Receipt Date: 20050516
  Transmission Date: 20060501
  Serious: Yes (Death)
  Sender: FDA-Public Use
  Company Number: USA-2002-0000602

PATIENT
  Age: 40 Year
  Sex: Female
  Weight: 64.4 kg

DRUGS (13)
  1. OXYCONTIN [Suspect]
  2. HYDROCODONE BITARTRATE (SIMILAR TO IND 59,175) (HYDROCODONE BITARTRATE [Suspect]
  3. DIAZEPAM [Suspect]
  4. OXYMORPHONE HYDROCHLORIDE [Suspect]
  5. CODEINE (CODEINE) [Suspect]
  6. LIDOCAINE [Suspect]
  7. CYCLOBENZAPRINE (CYCLOBENZAPRINE) [Suspect]
  8. OXAZEPAM [Suspect]
  9. TEMAZEPAM [Suspect]
  10. CAFFEINE (CAFFEINE) [Suspect]
  11. NICOTINE [Suspect]
  12. COCAINE (COCAINE) [Suspect]
  13. ETHANOL (ETHANOL) [Suspect]

REACTIONS (1)
  - MULTIPLE DRUG OVERDOSE ACCIDENTAL [None]
